FAERS Safety Report 9894838 (Version 1)
Quarter: 2014Q1

REPORT INFORMATION
  Report Type: Spontaneous
  Country: FR (occurrence: FR)
  Receive Date: 20140213
  Receipt Date: 20140213
  Transmission Date: 20141002
  Serious: Yes (Other)
  Sender: FDA-Public Use
  Company Number: PHHY2014FR016685

PATIENT
  Age: 65 Year
  Sex: Female

DRUGS (2)
  1. 5-FLUOROURACIL [Suspect]
     Indication: ADJUVANT THERAPY
     Dosage: 6400 MG, (TOTAL DOSE)
  2. LEUCOVORIN CALCIUM [Suspect]
     Indication: ADJUVANT THERAPY

REACTIONS (10)
  - Confusional state [Recovering/Resolving]
  - Somnolence [Recovering/Resolving]
  - Dysarthria [Recovering/Resolving]
  - Frontotemporal dementia [Not Recovered/Not Resolved]
  - Skin toxicity [Recovering/Resolving]
  - Mucosal inflammation [Recovering/Resolving]
  - Neutropenia [Recovering/Resolving]
  - Thrombocytopenia [Recovering/Resolving]
  - Cognitive disorder [Not Recovered/Not Resolved]
  - Abnormal behaviour [Not Recovered/Not Resolved]
